FAERS Safety Report 7099126-6 (Version None)
Quarter: 2010Q4

REPORT INFORMATION
  Report Type: 
  Country: None (occurrence: None)
  Receive Date: 20101112
  Receipt Date: 20101102
  Transmission Date: 20110411
  Serious: Yes (Other)
  Sender: FDA-Public Use
  Company Number: B0682319A

PATIENT
  Age: 60 Year
  Sex: Male

DRUGS (3)
  1. EPIVIR [Suspect]
     Indication: HIV INFECTION
     Route: 065
  2. TRUVADA [Suspect]
     Indication: HIV INFECTION
  3. EFAVIRENZ [Suspect]
     Indication: HIV INFECTION

REACTIONS (5)
  - BASEDOW'S DISEASE [None]
  - GLOMERULONEPHRITIS MEMBRANOUS [None]
  - IMMUNE RECONSTITUTION SYNDROME [None]
  - NEPHROTIC SYNDROME [None]
  - RENAL DISORDER [None]
